FAERS Safety Report 12845686 (Version 1)
Quarter: 2016Q4

REPORT INFORMATION
  Report Type: Spontaneous
  Country: DE (occurrence: DE)
  Receive Date: 20161013
  Receipt Date: 20161013
  Transmission Date: 20170207
  Serious: Yes (Other)
  Sender: FDA-Public Use
  Company Number: GXKR2016DE004716

PATIENT

DRUGS (1)
  1. CIPROFLOXACIN. [Suspect]
     Active Substance: CIPROFLOXACIN
     Indication: CYSTITIS NONINFECTIVE
     Dosage: UNK UKN, UNK
     Route: 048
     Dates: start: 20131021

REACTIONS (5)
  - Pain [Unknown]
  - Vocal cord paralysis [Recovered/Resolved with Sequelae]
  - Monoplegia [Recovered/Resolved with Sequelae]
  - Vomiting [Unknown]
  - Aphasia [Recovered/Resolved with Sequelae]

NARRATIVE: CASE EVENT DATE: 20131022
